FAERS Safety Report 8895949 (Version 1)
Quarter: 2012Q4

REPORT INFORMATION
  Report Type: 
  Country: US (occurrence: US)
  Receive Date: 20121108
  Receipt Date: 20121108
  Transmission Date: 20130627
  Serious: Yes (Hospitalization)
  Sender: FDA-Public Use
  Company Number: US-MYLANLABS-2012S1022522

PATIENT
  Age: 63 Year
  Sex: Female

DRUGS (4)
  1. IBUPROFEN [Suspect]
     Indication: BACK PAIN
     Route: 065
  2. LISINOPRIL [Suspect]
     Dosage: 10mg daily
     Route: 065
  3. METOPROLOL [Concomitant]
     Route: 065
  4. ASPIRIN [Concomitant]
     Dosage: 81mg daily
     Route: 065

REACTIONS (3)
  - Glomerulonephritis membranous [Recovering/Resolving]
  - Renal salt-wasting syndrome [Recovering/Resolving]
  - Hypoaldosteronism [Recovering/Resolving]
